FAERS Safety Report 17903197 (Version 2)
Quarter: 2020Q4

REPORT INFORMATION
  Report Type: Other
  Country: KR (occurrence: KR)
  Receive Date: 20200617
  Receipt Date: 20201013
  Transmission Date: 20210113
  Serious: Yes (Hospitalization)
  Sender: FDA-Public Use
  Company Number: KR-ROCHE-2619377

PATIENT
  Age: 56 Year
  Sex: Male

DRUGS (3)
  1. MYCOPHENOLATE MOFETIL. [Suspect]
     Active Substance: MYCOPHENOLATE MOFETIL
     Indication: IMMUNOSUPPRESSANT DRUG THERAPY
     Route: 065
     Dates: end: 20200318
  2. PREDNISOLONE. [Suspect]
     Active Substance: PREDNISOLONE
     Indication: IMMUNOSUPPRESSANT DRUG THERAPY
     Route: 065
  3. TACROLIMUS. [Suspect]
     Active Substance: TACROLIMUS
     Indication: IMMUNOSUPPRESSANT DRUG THERAPY
     Route: 065

REACTIONS (4)
  - Proteinuria [Recovered/Resolved]
  - COVID-19 [Recovered/Resolved]
  - Renal impairment [Recovered/Resolved]
  - Herpes zoster reactivation [Unknown]

NARRATIVE: CASE EVENT DATE: 2020
